FAERS Safety Report 21823388 (Version 1)
Quarter: 2023Q1

REPORT INFORMATION
  Report Type: Spontaneous
  Country: ES (occurrence: ES)
  Receive Date: 20230105
  Receipt Date: 20230105
  Transmission Date: 20230418
  Serious: Yes (Other)
  Sender: FDA-Public Use
  Company Number: ES-UCBSA-2022064393

PATIENT
  Age: 61 Year
  Sex: Female

DRUGS (6)
  1. LEVETIRACETAM [Suspect]
     Active Substance: LEVETIRACETAM
     Indication: Generalised tonic-clonic seizure
     Dosage: 12000 MILLIGRAM, QD, 2000 MILLIGRAM PER 4 HOURS
     Route: 042
  2. LEVETIRACETAM [Suspect]
     Active Substance: LEVETIRACETAM
     Dosage: 1000 MILLIGRAM, QD, 1000 MILLIGRAM PER 24 HOURS
     Route: 042
  3. PHENYTOIN [Suspect]
     Active Substance: PHENYTOIN
     Indication: Seizure
     Dosage: 2100 MILLIGRAM, QD, 350 MILLIGRAM PER 4 HOURS
     Route: 065
  4. PHENYTOIN [Suspect]
     Active Substance: PHENYTOIN
     Dosage: 300 MILLIGRAM, QD, 100 MILLIGRAM PER 8 HOURS
     Route: 065
  5. VIMPAT [Suspect]
     Active Substance: LACOSAMIDE
     Indication: Seizure
     Dosage: 400 MILLIGRAM, QD, 200 MILLIGRAM PER 12 HOUR
     Route: 065
  6. VIMPAT [Suspect]
     Active Substance: LACOSAMIDE
     Dosage: 200 MILLIGRAM, QD 200 MILLIGRAM PER 24 HOURS
     Route: 065

REACTIONS (5)
  - Focal dyscognitive seizures [Unknown]
  - Status epilepticus [Unknown]
  - Multiple-drug resistance [Unknown]
  - Off label use [Unknown]
  - Overdose [Unknown]
